FAERS Safety Report 18665912 (Version 1)
Quarter: 2020Q4

REPORT INFORMATION
  Report Type: Spontaneous
  Country: GB (occurrence: GB)
  Receive Date: 20201226
  Receipt Date: 20201226
  Transmission Date: 20210114
  Serious: Yes (Hospitalization)
  Sender: FDA-Public Use
  Company Number: GB-TEVA-2020-GB-1861595

PATIENT
  Age: 84 Year
  Sex: Male

DRUGS (17)
  1. MEMANTINE. [Suspect]
     Active Substance: MEMANTINE
     Dosage: 15MG
  2. MEMANTINE. [Suspect]
     Active Substance: MEMANTINE
     Dosage: 20MG
     Dates: start: 20200714
  3. ATORVASTATIN [Concomitant]
     Active Substance: ATORVASTATIN
     Dosage: 20 MILLIGRAM DAILY; AT NIGHT
  4. OMEPRAZOLE. [Concomitant]
     Active Substance: OMEPRAZOLE
     Dosage: 20 MILLIGRAM DAILY; IN THE MORNING
  5. MEMANTINE. [Suspect]
     Active Substance: MEMANTINE
     Dosage: 5MG
     Dates: start: 20200721
  6. EDOXABAN [Concomitant]
     Active Substance: EDOXABAN TOSYLATE
     Dosage: 60 MILLIGRAM DAILY; IN THE MORNING
  7. PARACETAMOL [Concomitant]
     Active Substance: ACETAMINOPHEN
     Dosage: EVERY 4-6 HOURS UP TO FOUR TIMES A DAY, 1000MG
  8. BRALTUS [Concomitant]
     Active Substance: TIOTROPIUM BROMIDE
     Dosage: 10MICROGRAM,INHALE THE CONTENTS, IN ZONDA, 1DF
     Route: 055
  9. ADCAL-D3 [Concomitant]
     Active Substance: CALCIUM CARBONATE\CHOLECALCIFEROL
     Dosage: TUTTI FRUTTI (PROSTRAKAN LTD)
  10. COCODAMOL [Concomitant]
     Active Substance: ACETAMINOPHEN\CODEINE PHOSPHATE
     Dosage: 8/500MG, ONE OR TWO,
     Dates: start: 20200706
  11. EVACAL D3 CHEWABLE [Concomitant]
     Dosage: 4 DOSAGE FORMS DAILY; 1500MG/400UNIT, MORNING AND EVENING.
  12. HYLO-FORTE [Concomitant]
     Active Substance: HYALURONATE SODIUM
     Indication: DRY EYE
     Dosage: 0.2%, USE AS DIRECTED FOR BOTH EYES
  13. SALBUTAMOL [Concomitant]
     Active Substance: ALBUTEROL
     Dosage: 100MICROGRAMS/DOSE, PUFFS, 2DF
     Route: 055
  14. FENBID [Concomitant]
     Active Substance: IBUPROFEN
     Dosage: 5%, APPLY A SMALL AMOUNT UP TO THREE TIMES A DAY, 100G
     Dates: start: 20200618
  15. FERROUS SULFATE. [Concomitant]
     Active Substance: FERROUS SULFATE
     Dosage: 800 MILLIGRAM DAILY; MORNING AND EVENING
  16. METFORMIN [Concomitant]
     Active Substance: METFORMIN HYDROCHLORIDE
     Dosage: 4000 MILLIGRAM DAILY; MORNING AND EVENING
  17. ALLOPURINOL. [Concomitant]
     Active Substance: ALLOPURINOL
     Dosage: 300 MILLIGRAM DAILY; IN THE MORNING

REACTIONS (1)
  - Petit mal epilepsy [Unknown]
